FAERS Safety Report 8821330 (Version 2)
Quarter: 2012Q4

REPORT INFORMATION
  Report Type: 
  Country: US (occurrence: US)
  Receive Date: 20121002
  Receipt Date: 20121107
  Transmission Date: 20130627
  Serious: Yes (Other)
  Sender: FDA-Public Use
  Company Number: US-BAYER-2012-099835

PATIENT
  Age: 71 Year
  Sex: Female

DRUGS (3)
  1. BAYER GENUINE ASPIRIN ORIGINAL STRENGTH [Suspect]
     Indication: CARDIOVASCULAR EVENT PROPHYLAXIS
  2. SPIRIVA [Suspect]
     Indication: CHRONIC OBSTRUCTIVE PULMONARY DISEASE
     Dosage: 1,8 mg daily
     Dates: start: 20120705, end: 20120716
  3. PLAVIX [Suspect]

REACTIONS (2)
  - Cough [Recovered/Resolved]
  - Pulmonary haemorrhage [Recovered/Resolved]
